FAERS Safety Report 8890038 (Version 2)
Quarter: 2012Q4

REPORT INFORMATION
  Report Type: 
  Country: US (occurrence: US)
  Receive Date: 20121107
  Receipt Date: 20121222
  Transmission Date: 20130627
  Serious: No
  Sender: FDA-Public Use
  Company Number: US-009507513-1210USA013778

PATIENT
  Age: 41 Year
  Sex: Female
  Weight: 67.57 kg

DRUGS (6)
  1. NEXPLANON [Suspect]
     Indication: CONTRACEPTION
     Dosage: 1 DF, every 3 years
     Route: 059
     Dates: start: 20121022
  2. TRAMADOL HYDROCHLORIDE [Concomitant]
  3. VITAMIN D2 [Concomitant]
  4. COLACE [Concomitant]
  5. PERCOCET [Concomitant]
  6. CYCLOBENZAPRINE HYDROCHLORIDE [Concomitant]

REACTIONS (4)
  - Abnormal sensation in eye [Unknown]
  - Chest pain [Unknown]
  - Hypoaesthesia [Unknown]
  - Rash [Unknown]
